FAERS Safety Report 17438826 (Version 6)
Quarter: 2020Q3

REPORT INFORMATION
  Report Type: Report from Study
  Country: NL (occurrence: NL)
  Receive Date: 20200220
  Receipt Date: 20200803
  Transmission Date: 20201102
  Serious: Yes (Hospitalization, Other)
  Sender: FDA-Public Use
  Company Number: NL-ACTELION-A-CH2019-187394

PATIENT
  Age: 23 Year
  Sex: Female
  Weight: 53 kg

DRUGS (12)
  1. UPTRAVI [Suspect]
     Active Substance: SELEXIPAG
     Indication: PULMONARY ARTERIAL HYPERTENSION
     Dosage: 400 MCG, QD
     Route: 048
     Dates: start: 20181127, end: 20190219
  2. MIDAZOLAM. [Concomitant]
     Active Substance: MIDAZOLAM
     Indication: ANAESTHESIA
     Dosage: UNK
     Route: 042
     Dates: start: 20200417, end: 20200418
  3. LEVOBUPIVACAINE [Concomitant]
     Active Substance: LEVOBUPIVACAINE
     Indication: UTERINE DILATION AND CURETTAGE
     Dosage: UNK
     Route: 050
     Dates: start: 20200417, end: 20200418
  4. FENTANYL. [Concomitant]
     Active Substance: FENTANYL
     Indication: ANAESTHESIA
     Dosage: UNK
     Route: 042
     Dates: start: 20200417, end: 20200418
  5. SPIRONOLACTON [Concomitant]
     Active Substance: SPIRONOLACTONE
     Indication: HYPOKALAEMIA
     Dosage: UNK, PRN
     Route: 048
     Dates: start: 201703
  6. METRONIDAZOL [METRONIDAZOLE] [Concomitant]
     Active Substance: METRONIDAZOLE
     Dosage: UNK
     Route: 042
     Dates: start: 20200417, end: 20200418
  7. ADCIRCA [Concomitant]
     Active Substance: TADALAFIL
     Indication: PULMONARY ARTERIAL HYPERTENSION
     Dosage: 40 MG, QD
     Route: 048
     Dates: start: 201406
  8. POTASSIUM CHLORIDE. [Concomitant]
     Active Substance: POTASSIUM CHLORIDE
     Dosage: UNK, PRN
     Route: 048
     Dates: start: 20200622
  9. CEFAZOLINE [CEFAZOLIN SODIUM] [Concomitant]
     Active Substance: CEFAZOLIN SODIUM
     Indication: INFECTION PROPHYLAXIS
     Dosage: UNK
     Route: 042
     Dates: start: 20200414, end: 20200418
  10. NAPROXEN. [Concomitant]
     Active Substance: NAPROXEN
     Indication: PAIN
     Dosage: UNK, PRN
     Route: 048
     Dates: start: 20200225
  11. AMBRISENTAN [Concomitant]
     Active Substance: AMBRISENTAN
     Indication: PULMONARY ARTERIAL HYPERTENSION
     Dosage: 5 MG, QD
     Route: 048
     Dates: start: 201403
  12. POTASSIUM CHLORIDE. [Concomitant]
     Active Substance: POTASSIUM CHLORIDE
     Indication: HYPOKALAEMIA
     Dosage: UNK, PRN
     Route: 048
     Dates: start: 20131017, end: 20200622

REACTIONS (12)
  - Headache [Recovered/Resolved]
  - Amenorrhoea [Unknown]
  - Pain [Recovering/Resolving]
  - Uterine infection [Unknown]
  - Uterine haemorrhage [Unknown]
  - Abdominal pain upper [Recovered/Resolved]
  - Pregnancy [Unknown]
  - Pregnancy test positive [Unknown]
  - Intra-uterine contraceptive device insertion [Unknown]
  - Nausea [Unknown]
  - Human chorionic gonadotropin increased [Unknown]
  - Uterine dilation and curettage [Unknown]

NARRATIVE: CASE EVENT DATE: 20181128
